FAERS Safety Report 8847076 (Version 1)
Quarter: 2012Q4

REPORT INFORMATION
  Report Type: Spontaneous
  Country: US (occurrence: None)
  Receive Date: 20121017
  Receipt Date: 20121017
  Transmission Date: 20130627
  Serious: Yes (Death)
  Sender: FDA-Public Use
  Company Number: None

PATIENT
  Age: 68 Year
  Sex: Male

DRUGS (2)
  1. REVLIMID [Suspect]
     Indication: MULTIPLE MYELOMA
     Route: 048
     Dates: start: 200912, end: 201102
  2. REVLIMID [Suspect]
     Indication: MULTIPLE MYELOMA
     Dates: start: 201112, end: 201202

REACTIONS (1)
  - Death [None]
